FAERS Safety Report 8027250-X (Version None)
Quarter: 2012Q1

REPORT INFORMATION
  Report Type: 
  Country: None (occurrence: None)
  Receive Date: 20120106
  Receipt Date: 20111229
  Transmission Date: 20120608
  Serious: Yes (Hospitalization, Other)
  Sender: FDA-Public Use
  Company Number: FI-AMGEN-FINSP2011069867

PATIENT
  Age: 15 Year
  Sex: Female

DRUGS (3)
  1. XYZAL [Suspect]
     Dosage: 5 MG, UNK
     Dates: start: 20111128
  2. ARAVA [Concomitant]
     Indication: JUVENILE ARTHRITIS
     Dosage: 20 MG, 1X/DAY
     Route: 048
     Dates: start: 20101215
  3. ENBREL [Suspect]
     Indication: JUVENILE ARTHRITIS
     Dosage: 50 MG, WEEKLY
     Route: 058
     Dates: start: 20110920, end: 20111128

REACTIONS (5)
  - SENSATION OF FOREIGN BODY [None]
  - URTICARIA [None]
  - OROPHARYNGEAL DISCOMFORT [None]
  - SUFFOCATION FEELING [None]
  - ERYTHEMA [None]
